FAERS Safety Report 9022177 (Version 1)
Quarter: 2013Q1

REPORT INFORMATION
  Report Type: Spontaneous
  Country: US (occurrence: US)
  Receive Date: 20130118
  Receipt Date: 20130118
  Transmission Date: 20140127
  Serious: Yes (Other)
  Sender: FDA-Public Use
  Company Number: US-ASTRAZENECA-2013SE01976

PATIENT
  Age: 666 Day
  Sex: Male
  Weight: 11.3 kg

DRUGS (2)
  1. SYNAGIS [Suspect]
     Indication: ANTIVIRAL PROPHYLAXIS
     Route: 030
     Dates: start: 201211
  2. MULTI VITAMIN WITH IRON [Concomitant]

REACTIONS (1)
  - Dyspnoea [Unknown]
